FAERS Safety Report 5527975-1 (Version None)
Quarter: 2007Q4

REPORT INFORMATION
  Report Type: 
  Country: None (occurrence: None)
  Receive Date: 20071109
  Receipt Date: 20070622
  Transmission Date: 20080405
  Serious: Yes (Other)
  Sender: FDA-Public Use
  Company Number: PHEH2006US05661

PATIENT
  Age: 60 Year
  Sex: Female
  Weight: 81.6 kg

DRUGS (5)
  1. ESTRADERM [Suspect]
     Indication: MENOPAUSE
     Dosage: 0.05 MG, TRANSDERMAL
     Route: 062
     Dates: start: 19930801, end: 19940101
  2. PREMARIN [Suspect]
     Indication: MENOPAUSE
     Dosage: 0.626 MG, ORAL
     Route: 048
     Dates: start: 19930501, end: 19930801
  3. PROVERA [Suspect]
     Indication: MENOPAUSE
     Dosage: 5 MG, ORAL
     Route: 048
     Dates: start: 19930501, end: 19930801
  4. PREMPRO [Suspect]
     Indication: CARDIOVASCULAR EVENT PROPHYLAXIS
     Dosage: 0.625/5 MG, ORAL
     Route: 048
     Dates: start: 19980401, end: 20020701
  5. SYNTHROID [Concomitant]

REACTIONS (17)
  - BREAST CANCER [None]
  - BREAST MASS [None]
  - BREAST OPERATION [None]
  - DEEP VEIN THROMBOSIS [None]
  - DEPRESSION [None]
  - HYPERBARIC OXYGEN THERAPY [None]
  - LOCALISED INFECTION [None]
  - LYMPHADENECTOMY [None]
  - OSTEOARTHRITIS [None]
  - PAIN IN EXTREMITY [None]
  - RADIATION SKIN INJURY [None]
  - RADIOTHERAPY [None]
  - SPINAL OSTEOARTHRITIS [None]
  - SWELLING [None]
  - WOUND [None]
  - WOUND DEBRIDEMENT [None]
  - WOUND NECROSIS [None]
